FAERS Safety Report 16412150 (Version 1)
Quarter: 2019Q2

REPORT INFORMATION
  Report Type: Spontaneous
  Country: US (occurrence: US)
  Receive Date: 20190610
  Receipt Date: 20190610
  Transmission Date: 20190711
  Serious: No
  Sender: FDA-Public Use
  Company Number: US-009507513-1906USA000932

PATIENT
  Age: 16 Year
  Sex: Female
  Weight: 68.03 kg

DRUGS (2)
  1. IBUPROFEN. [Concomitant]
     Active Substance: IBUPROFEN
  2. NEXPLANON [Suspect]
     Active Substance: ETONOGESTREL
     Indication: CONTRACEPTION
     Dosage: 1 IMPLANT, LEFT ARM, 3 YEARS
     Route: 059
     Dates: start: 20180803

REACTIONS (2)
  - Menorrhagia [Not Recovered/Not Resolved]
  - Polycystic ovaries [Not Recovered/Not Resolved]
